FAERS Safety Report 9707037 (Version 1)
Quarter: 2013Q4

REPORT INFORMATION
  Report Type: Spontaneous
  Country: US (occurrence: None)
  Receive Date: 20131122
  Receipt Date: 20131122
  Transmission Date: 20140711
  Serious: Yes (Hospitalization)
  Sender: FDA-Public Use
  Company Number: None

PATIENT
  Age: 85 Year
  Sex: Female
  Weight: 49.9 kg

DRUGS (4)
  1. SORAFENIB [Suspect]
     Indication: OVARIAN CANCER
     Route: 048
     Dates: start: 20130725, end: 20131119
  2. VORINOSTAT [Suspect]
     Indication: OVARIAN CANCER
     Route: 048
     Dates: start: 20130828, end: 20131119
  3. WARFARIN [Concomitant]
  4. VIT D3 [Concomitant]

REACTIONS (3)
  - Disease progression [None]
  - Hyponatraemia [None]
  - Hyperkalaemia [None]
